FAERS Safety Report 16517664 (Version 3)
Quarter: 2019Q3

REPORT INFORMATION
  Report Type: Spontaneous
  Country: US (occurrence: US)
  Receive Date: 20190702
  Receipt Date: 20190823
  Transmission Date: 20191004
  Serious: Yes (Hospitalization)
  Sender: FDA-Public Use
  Company Number: US-VERTEX PHARMACEUTICALS-2019-005979

PATIENT
  Age: 9 Year
  Sex: Male

DRUGS (11)
  1. KALYDECO [Suspect]
     Active Substance: IVACAFTOR
     Indication: CYSTIC FIBROSIS
     Dosage: 1 DOSAGE FORM, BID
     Route: 048
     Dates: start: 20180724
  2. AZITHROMYCIN ANHYDROUS. [Concomitant]
     Active Substance: AZITHROMYCIN ANHYDROUS
  3. ALBUTEROL HFA [Concomitant]
     Active Substance: ALBUTEROL SULFATE
     Dosage: 0.5 MILLILITER, BID
     Route: 055
  4. POLYETHYLENE GLYCOL 3350. [Concomitant]
     Active Substance: POLYETHYLENE GLYCOL 3350
     Dosage: 8.5 GRAM,QAM
     Route: 048
  5. RIFABUTIN. [Concomitant]
     Active Substance: RIFABUTIN
     Dosage: 2 CAP, QD
     Route: 048
  6. MUCOMYST [Concomitant]
     Active Substance: ACETYLCYSTEINE
     Dosage: 2 MILLILITER, BID
     Route: 055
  7. CYPROHEPTADINE. [Concomitant]
     Active Substance: CYPROHEPTADINE
     Dosage: 0.5 DOSAGE FORM, QID
     Route: 048
  8. AMIKACIN. [Concomitant]
     Active Substance: AMIKACIN
     Route: 055
  9. ETHAMBUTOL [Concomitant]
     Active Substance: ETHAMBUTOL HYDROCHLORIDE
     Dosage: 1 DOSAGE FORM, QD
     Route: 048
  10. DORNASE ALFA. [Concomitant]
     Active Substance: DORNASE ALFA
     Dosage: 2.5 MILLILITER, BID
     Route: 055
  11. SODIUM CHLORIDE. [Concomitant]
     Active Substance: SODIUM CHLORIDE
     Dosage: UNK, BID
     Route: 055

REACTIONS (3)
  - Atypical mycobacterial lower respiratory tract infection [Not Recovered/Not Resolved]
  - Infective pulmonary exacerbation of cystic fibrosis [Not Recovered/Not Resolved]
  - Lung infection pseudomonal [Not Recovered/Not Resolved]

NARRATIVE: CASE EVENT DATE: 20190617
